FAERS Safety Report 4636996-2 (Version None)
Quarter: 2005Q2

REPORT INFORMATION
  Report Type: 
  Country: None (occurrence: None)
  Receive Date: 20050415
  Receipt Date: 20050209
  Transmission Date: 20051028
  Serious: No
  Sender: FDA-Public Use
  Company Number: 2005S1000491

PATIENT
  Sex: Female
  Weight: 81.6475 kg

DRUGS (10)
  1. TAMOXIFEN CITRATE [Suspect]
     Indication: BREAST CANCER
     Dosage: 20 MG; QD; PO
     Route: 048
     Dates: start: 20030501
  2. ATORVASTATIN CALCIUM [Concomitant]
  3. LEVOTHYROXINE SODIUM [Concomitant]
  4. LOSARTAN POTASSIUM [Concomitant]
  5. ALENDRONATE SODIUM [Concomitant]
  6. FOLIC ACID [Concomitant]
  7. TOCOPHEROL CONCENTRATE CAP [Concomitant]
  8. ASCORBIC ACID [Concomitant]
  9. CYANOCOBALAMIN [Concomitant]
  10. PHENYLTOLOXAMINE/ PARACETAMOL/ PHENYLPROPANOLAMINE HYDROCHLORIDE [Concomitant]

REACTIONS (6)
  - DRY SKIN [None]
  - HAIR TEXTURE ABNORMAL [None]
  - HOT FLUSH [None]
  - MEMORY IMPAIRMENT [None]
  - VAGINAL MYCOSIS [None]
  - VULVOVAGINAL DRYNESS [None]
